FAERS Safety Report 9678195 (Version 5)
Quarter: 2013Q4

REPORT INFORMATION
  Report Type: Spontaneous
  Country: JP (occurrence: JP)
  Receive Date: 20131108
  Receipt Date: 20131126
  Transmission Date: 20140711
  Serious: Yes (Other)
  Sender: FDA-Public Use
  Company Number: JP-JNJFOC-20130519091

PATIENT
  Age: 71 Year
  Sex: Male
  Weight: 55 kg

DRUGS (16)
  1. TRAMACET [Suspect]
     Indication: PAIN
     Dosage: 1 PER 1 DAY
     Route: 048
     Dates: start: 20130329, end: 20130331
  2. TRAMACET [Suspect]
     Indication: PAIN
     Dosage: 1 PER 1 DAY
     Route: 048
     Dates: start: 20130401, end: 20130407
  3. TRAMACET [Suspect]
     Indication: PAIN
     Dosage: 1 PER 1 DAY
     Route: 048
     Dates: start: 20130408
  4. TRAMACET [Suspect]
     Indication: PAIN
     Dosage: 1 PER 1 DAY
     Route: 048
  5. TRAMACET [Suspect]
     Indication: PAIN
     Dosage: 1 PER 1 DAY
     Route: 048
  6. TRAMACET [Suspect]
     Indication: PAIN
     Dosage: 1 PER 1 DAY
     Route: 048
  7. TRAMACET [Suspect]
     Indication: PAIN
     Route: 048
  8. FERRUM [Concomitant]
     Indication: MALNUTRITION
     Route: 048
  9. PARIET [Concomitant]
     Indication: MALNUTRITION
     Route: 048
  10. CLOSTRIDIUM BUTYRICUM [Concomitant]
     Indication: MALNUTRITION
     Route: 048
  11. METHYCOBAL [Concomitant]
     Indication: MALNUTRITION
     Route: 048
  12. EURODIN [Concomitant]
     Indication: MALNUTRITION
     Route: 048
  13. PRIMPERAN [Concomitant]
     Indication: SPONDYLITIS
     Route: 048
     Dates: start: 20130329, end: 20130407
  14. CEFMETAZOLE SODIUM [Concomitant]
     Indication: SPONDYLITIS
     Route: 042
     Dates: start: 20130409, end: 20130415
  15. ZOSYN [Concomitant]
     Indication: SPONDYLITIS
     Route: 042
     Dates: start: 20130416, end: 20130419
  16. ZOSYN [Concomitant]
     Indication: SPONDYLITIS
     Route: 042
     Dates: start: 20130515, end: 20130517

REACTIONS (1)
  - Loss of consciousness [Recovered/Resolved]
